FAERS Safety Report 8236535-3 (Version None)
Quarter: 2012Q1

REPORT INFORMATION
  Report Type: 
  Country: None (occurrence: None)
  Receive Date: 20120327
  Receipt Date: 20120316
  Transmission Date: 20120608
  Serious: Yes (Hospitalization)
  Sender: FDA-Public Use
  Company Number: US-BAYER-2012-011624

PATIENT
  Age: 29 Year
  Sex: Female
  Weight: 95 kg

DRUGS (2)
  1. YAZ [Suspect]
     Indication: CONTRACEPTION
     Dosage: UNK
     Route: 048
     Dates: start: 20090601, end: 20091201
  2. YAZ [Suspect]
     Indication: WEIGHT DECREASED

REACTIONS (9)
  - CHOLECYSTITIS INFECTIVE [None]
  - CHOLELITHIASIS [None]
  - DYSPEPSIA [None]
  - DEPRESSION [None]
  - NERVOUSNESS [None]
  - VOMITING [None]
  - INJURY [None]
  - EMOTIONAL DISTRESS [None]
  - FEAR OF DEATH [None]
